FAERS Safety Report 9346394 (Version 1)
Quarter: 2013Q2

REPORT INFORMATION
  Report Type: Spontaneous
  Country: BR (occurrence: BR)
  Receive Date: 20130613
  Receipt Date: 20130613
  Transmission Date: 20140414
  Serious: Yes (Hospitalization)
  Sender: FDA-Public Use
  Company Number: BR-PFIZER INC-2013172560

PATIENT
  Age: 82 Year
  Sex: Male
  Weight: 85 kg

DRUGS (4)
  1. LIPITOR [Suspect]
     Dosage: 20 MG, DAILY
     Route: 048
     Dates: start: 20111019, end: 2013
  2. ANCORON [Concomitant]
     Indication: CARDIAC DISORDER
     Dosage: 1 DF, 1X/DAY (ONE CPS DAILY)
     Dates: start: 2012
  3. LASIX [Concomitant]
     Indication: DIURETIC THERAPY
     Dosage: 1 DF, 1X/DAY (ONE CPS DAILY)
     Dates: start: 2011
  4. MAREVAN [Concomitant]
     Indication: CARDIAC DISORDER
     Dosage: 1 DF, 1X/DAY (ONE CPS DAILY)
     Dates: start: 2012

REACTIONS (1)
  - Cardiac valve disease [Recovering/Resolving]
